FAERS Safety Report 7619647-4 (Version None)
Quarter: 2011Q3

REPORT INFORMATION
  Report Type: 
  Country: None (occurrence: None)
  Receive Date: 20110719
  Receipt Date: 20110708
  Transmission Date: 20111222
  Serious: Yes (Hospitalization, Other)
  Sender: FDA-Public Use
  Company Number: NL-JNJFOC-20110703986

PATIENT
  Age: 93 Year
  Sex: Female

DRUGS (2)
  1. RISPERIDONE [Suspect]
     Route: 048
  2. RISPERIDONE [Suspect]
     Indication: PRODUCT USED FOR UNKNOWN INDICATION
     Route: 048

REACTIONS (7)
  - HYPERHIDROSIS [None]
  - DEPRESSED LEVEL OF CONSCIOUSNESS [None]
  - SOMNOLENCE [None]
  - HYPOKALAEMIA [None]
  - HYPERNATRAEMIA [None]
  - PNEUMONIA ASPIRATION [None]
  - ACCIDENTAL OVERDOSE [None]
